FAERS Safety Report 16098134 (Version 20)
Quarter: 2021Q3

REPORT INFORMATION
  Report Type: Spontaneous
  Country: CA (occurrence: CA)
  Receive Date: 20190320
  Receipt Date: 20210929
  Transmission Date: 20211014
  Serious: Yes (Other)
  Sender: FDA-Public Use
  Company Number: CA-CELLTRION INC.-2018CA023522

PATIENT

DRUGS (38)
  1. INFLECTRA [Suspect]
     Active Substance: INFLIXIMAB-DYYB
     Dosage: 10 MG/KG, ROUND UP EVERY 4 WEEKS
     Route: 042
     Dates: start: 20190501
  2. INFLECTRA [Suspect]
     Active Substance: INFLIXIMAB-DYYB
     Dosage: 10 MG/KG, ROUND UP EVERY 4 WEEKS
     Route: 042
     Dates: start: 20190710
  3. INFLECTRA [Suspect]
     Active Substance: INFLIXIMAB-DYYB
     Dosage: 10 MG/KG, ROUND UP EVERY 4 WEEKS
     Route: 042
     Dates: start: 20191224
  4. INFLECTRA [Suspect]
     Active Substance: INFLIXIMAB-DYYB
     Indication: COLITIS ULCERATIVE
     Dosage: 200 MG EVERY 0, 2, 6 WEEKS THEN EVERY 8 WEEKS
     Route: 042
     Dates: start: 20181102
  5. INFLECTRA [Suspect]
     Active Substance: INFLIXIMAB-DYYB
     Dosage: 10 MG/KG, ROUND UP EVERY 4 WEEKS
     Route: 042
     Dates: start: 20190501
  6. INFLECTRA [Suspect]
     Active Substance: INFLIXIMAB-DYYB
     Dosage: 10 MG/KG, ROUND UP EVERY 4 WEEKS
     Route: 042
     Dates: start: 20201114
  7. INFLECTRA [Suspect]
     Active Substance: INFLIXIMAB-DYYB
     Dosage: 10 MG/KG, ROUND UP EVERY 4 WEEKS
     Route: 042
     Dates: start: 20210528
  8. INFLECTRA [Suspect]
     Active Substance: INFLIXIMAB-DYYB
     Dosage: 200 MG EVERY 0, 2, 6 WEEKS THEN EVERY 8 WEEKS
     Route: 042
     Dates: start: 20190125
  9. INFLECTRA [Suspect]
     Active Substance: INFLIXIMAB-DYYB
     Dosage: 10 MG/KG, ROUND UP EVERY 4 WEEKS
     Route: 042
     Dates: start: 20190710
  10. INFLECTRA [Suspect]
     Active Substance: INFLIXIMAB-DYYB
     Dosage: 10 MG/KG, ROUND UP EVERY 4 WEEKS
     Route: 042
     Dates: start: 20190806
  11. INFLECTRA [Suspect]
     Active Substance: INFLIXIMAB-DYYB
     Dosage: 10 MG/KG, ROUND UP EVERY 4 WEEKS
     Route: 042
     Dates: start: 20191127
  12. INFLECTRA [Suspect]
     Active Substance: INFLIXIMAB-DYYB
     Dosage: 10 MG/KG, ROUND UP EVERY 4 WEEKS
     Route: 042
     Dates: start: 20200316
  13. METHOTREXATE SODIUM. [Concomitant]
     Active Substance: METHOTREXATE SODIUM
     Dosage: 100 ML, WEEKLY
     Dates: start: 201909
  14. INFLECTRA [Suspect]
     Active Substance: INFLIXIMAB-DYYB
     Dosage: 200 MG EVERY 0, 2, 6 WEEKS THEN EVERY 8 WEEKS
     Route: 042
     Dates: start: 20181129
  15. INFLECTRA [Suspect]
     Active Substance: INFLIXIMAB-DYYB
     Dosage: 10 MG/KG, ROUND UP EVERY 4 WEEKS
     Route: 042
     Dates: start: 20200620
  16. INFLECTRA [Suspect]
     Active Substance: INFLIXIMAB-DYYB
     Indication: RHEUMATOID ARTHRITIS
     Dosage: 200 MG EVERY 0, 2, 6 WEEKS THEN EVERY 8 WEEKS
     Route: 042
     Dates: start: 20181019, end: 20190125
  17. INFLECTRA [Suspect]
     Active Substance: INFLIXIMAB-DYYB
     Dosage: 10 MG/KG, ROUND UP EVERY 4 WEEKS
     Route: 042
     Dates: start: 20190514
  18. INFLECTRA [Suspect]
     Active Substance: INFLIXIMAB-DYYB
     Dosage: 10 MG/KG, ROUND UP EVERY 4 WEEKS
     Route: 042
     Dates: start: 20200815
  19. INFLECTRA [Suspect]
     Active Substance: INFLIXIMAB-DYYB
     Dosage: 10 MG/KG, ROUND UP EVERY 4 WEEKS
     Route: 042
     Dates: start: 20200815
  20. INFLECTRA [Suspect]
     Active Substance: INFLIXIMAB-DYYB
     Dosage: 10 MG/KG, ROUND UP EVERY 4 WEEKS
     Route: 042
     Dates: start: 20201010, end: 20201010
  21. GABAPENTIN. [Concomitant]
     Active Substance: GABAPENTIN
     Dosage: 200 MG, Q (EVERY) HS (AT BEDTIME)
     Route: 065
  22. FOLIC ACID. [Concomitant]
     Active Substance: FOLIC ACID
     Dosage: 5 MG, WEEKLY
     Route: 065
  23. INFLECTRA [Suspect]
     Active Substance: INFLIXIMAB-DYYB
     Dosage: 200 MG  EVERY 6 WEEKS
     Route: 042
     Dates: start: 20190401
  24. INFLECTRA [Suspect]
     Active Substance: INFLIXIMAB-DYYB
     Dosage: 10 MG/KG, ROUND UP EVERY 4 WEEKS
     Route: 042
     Dates: start: 20200219
  25. INFLECTRA [Suspect]
     Active Substance: INFLIXIMAB-DYYB
     Dosage: 10 MG/KG, ROUND UP EVERY 4 WEEKS
     Route: 042
     Dates: start: 20200520
  26. INFLECTRA [Suspect]
     Active Substance: INFLIXIMAB-DYYB
     Dosage: 10 MG/KG, ROUND UP EVERY 4 WEEKS
     Route: 042
     Dates: start: 20200912
  27. INFLECTRA [Suspect]
     Active Substance: INFLIXIMAB-DYYB
     Dosage: 10 MG/KG, ROUND UP EVERY 4 WEEKS
     Route: 042
     Dates: start: 20210624
  28. INFLECTRA [Suspect]
     Active Substance: INFLIXIMAB-DYYB
     Dosage: 10 MG/KG, ROUND UP EVERY 4 WEEKS
     Route: 042
     Dates: start: 20210820
  29. INFLECTRA [Suspect]
     Active Substance: INFLIXIMAB-DYYB
     Dosage: 10 MG/KG, ROUND UP EVERY 4 WEEKS
     Route: 042
     Dates: start: 20210917
  30. AZATHIOPRINE. [Concomitant]
     Active Substance: AZATHIOPRINE
     Dosage: 50 MG, DAILY
     Route: 048
  31. MEZAVANT [Concomitant]
     Active Substance: MESALAMINE
     Dosage: 1.2 G, DAILY
     Route: 065
  32. SULFATRIM [SULFADIAZINE;TRIMETHOPRIM] [Concomitant]
     Active Substance: SULFADIAZINE\TRIMETHOPRIM
     Dosage: UNK, 3 TIMES PER WEEK FOR 3 MONTHS
     Dates: start: 20190820
  33. INFLECTRA [Suspect]
     Active Substance: INFLIXIMAB-DYYB
     Dosage: 200 MG EVERY 6 WEEKS
     Route: 042
     Dates: start: 20190306, end: 20190415
  34. INFLECTRA [Suspect]
     Active Substance: INFLIXIMAB-DYYB
     Dosage: 200 MG  EVERY 6 WEEKS
     Route: 042
     Dates: start: 20190415
  35. INFLECTRA [Suspect]
     Active Substance: INFLIXIMAB-DYYB
     Dosage: 10 MG/KG, ROUND UP EVERY 4 WEEKS
     Route: 042
     Dates: start: 20191001
  36. INFLECTRA [Suspect]
     Active Substance: INFLIXIMAB-DYYB
     Dosage: 10 MG/KG, ROUND UP EVERY 4 WEEKS
     Route: 042
     Dates: start: 20200411
  37. INFLECTRA [Suspect]
     Active Substance: INFLIXIMAB-DYYB
     Dosage: 10 MG/KG, ROUND UP EVERY 4 WEEKS
     Route: 042
     Dates: start: 20210420
  38. CYCLOSPORINE. [Concomitant]
     Active Substance: CYCLOSPORINE
     Dosage: (25/50) MG, 2X/DAY (AM AND PM)
     Route: 048

REACTIONS (16)
  - Drug level below therapeutic [Recovering/Resolving]
  - Condition aggravated [Recovered/Resolved]
  - Dry eye [Unknown]
  - Pneumonia [Recovered/Resolved]
  - Faecal calprotectin increased [Unknown]
  - White blood cell count decreased [Recovered/Resolved]
  - Blood pressure fluctuation [Unknown]
  - Weight decreased [Unknown]
  - Off label use [Unknown]
  - Inappropriate schedule of product administration [Unknown]
  - Oral herpes [Unknown]
  - Antibody test positive [Unknown]
  - Body temperature decreased [Unknown]
  - Incorrect dose administered [Unknown]
  - Intentional product use issue [Unknown]
  - Cough [Not Recovered/Not Resolved]

NARRATIVE: CASE EVENT DATE: 2018
